FAERS Safety Report 4291749-2 (Version None)
Quarter: 2004Q1

REPORT INFORMATION
  Report Type: 
  Country: None (occurrence: None)
  Receive Date: 20040211
  Receipt Date: 20030207
  Transmission Date: 20041129
  Serious: Yes (Life-Threatening, Hospitalization, Disabling, Other)
  Sender: FDA-Public Use
  Company Number: US-GLAXOSMITHKLINE-A0396045A

PATIENT
  Age: 50 Year
  Sex: Female
  Weight: 40.9 kg

DRUGS (3)
  1. IMITREX [Suspect]
     Indication: MIGRAINE
     Route: 058
     Dates: start: 19930101
  2. COZAAR [Concomitant]
     Dosage: 50MG PER DAY
     Route: 048
  3. TIAZAC [Concomitant]
     Dosage: 240MG PER DAY
     Route: 048

REACTIONS (3)
  - CEREBRAL HAEMORRHAGE [None]
  - HYPERTENSION [None]
  - HYPERTENSIVE CRISIS [None]
